FAERS Safety Report 5387781-8 (Version None)
Quarter: 2007Q3

REPORT INFORMATION
  Report Type: 
  Country: None (occurrence: None)
  Receive Date: 20070716
  Receipt Date: 20070703
  Transmission Date: 20080115
  Serious: Yes (Other)
  Sender: FDA-Public Use
  Company Number: US-ROCHE-477307

PATIENT
  Age: 15 Year
  Sex: Female
  Weight: 49 kg

DRUGS (5)
  1. ACCUTANE [Suspect]
     Indication: ACNE
     Dosage: STRENGTH REPORTED AS 10MG - 60 MG. DOSAGE REPORTED AS VARIABLE.
     Route: 048
     Dates: start: 20001111, end: 20010401
  2. ACCUTANE [Suspect]
     Dosage: STRENGTH REPORTED AS 10MG - 60 MG. DOSAGE REPORTED AS VARIABLE.
     Route: 048
     Dates: start: 20011113, end: 20020415
  3. ORTHO TRI-CYCLEN LO [Concomitant]
  4. AQUAPHOR [Concomitant]
     Indication: ACNE
     Dates: start: 20001204
  5. CETAPHIL [Concomitant]
     Indication: ACNE
     Dosage: DRUG REPORTED AS CETAPHIL CR W/SPF 15.
     Dates: start: 20001204

REACTIONS (16)
  - ABDOMINAL PAIN [None]
  - BLOOD CHOLESTEROL INCREASED [None]
  - BLOOD TRIGLYCERIDES INCREASED [None]
  - COLITIS [None]
  - COLITIS ULCERATIVE [None]
  - DIZZINESS [None]
  - DRY SKIN [None]
  - EMOTIONAL DISTRESS [None]
  - HEPATIC ENZYME INCREASED [None]
  - INFLAMMATORY BOWEL DISEASE [None]
  - INJURY [None]
  - IRRITABLE BOWEL SYNDROME [None]
  - LIP DRY [None]
  - POLYP [None]
  - PROCTITIS [None]
  - RECTAL HAEMORRHAGE [None]
